FAERS Safety Report 15300963 (Version 2)
Quarter: 2018Q3

REPORT INFORMATION
  Report Type: Report from Study
  Country: AR (occurrence: AR)
  Receive Date: 20180821
  Receipt Date: 20180827
  Transmission Date: 20181010
  Serious: Yes (Death, Hospitalization)
  Sender: FDA-Public Use
  Company Number: PHHY2018AR078027

PATIENT
  Sex: Male

DRUGS (1)
  1. ENTRESTO [Suspect]
     Active Substance: SACUBITRIL\VALSARTAN
     Indication: CARDIAC FAILURE
     Dosage: STARTED 2 YEARS AGO APPROXIMATELY
     Route: 065

REACTIONS (4)
  - Post procedural fistula [Fatal]
  - Cardio-respiratory arrest [Fatal]
  - Post procedural infection [Fatal]
  - Post procedural discharge [Fatal]
